FAERS Safety Report 12960362 (Version 1)
Quarter: 2016Q4

REPORT INFORMATION
  Report Type: Spontaneous
  Country: US (occurrence: US)
  Receive Date: 20161120
  Receipt Date: 20161120
  Transmission Date: 20170207
  Serious: Yes (Other)
  Sender: FDA-Public Use
  Company Number: None

PATIENT
  Age: 58 Year
  Sex: Male
  Weight: 99 kg

DRUGS (15)
  1. OMEGA FATTY ACID SUPPLEMENT [Concomitant]
  2. GABAPENTIN 400 MG [Suspect]
     Active Substance: GABAPENTIN
     Indication: PARAESTHESIA
     Dosage: ?          QUANTITY:1 CAPSULE(S);?
     Route: 048
     Dates: start: 20161107, end: 20161110
  3. VISTARIL [Concomitant]
     Active Substance: HYDROXYZINE PAMOATE
  4. SYMBICORT [Concomitant]
     Active Substance: BUDESONIDE\FORMOTEROL FUMARATE DIHYDRATE
  5. MELATONIN [Concomitant]
     Active Substance: MELATONIN
  6. COLACE [Concomitant]
     Active Substance: DOCUSATE SODIUM
  7. ASPIRIN. [Concomitant]
     Active Substance: ASPIRIN
  8. TYLENOL [Concomitant]
     Active Substance: ACETAMINOPHEN
  9. ABILIFY [Concomitant]
     Active Substance: ARIPIPRAZOLE
  10. GLUCOSAMINE [Concomitant]
     Active Substance: GLUCOSAMINE
  11. PROZAC [Concomitant]
     Active Substance: FLUOXETINE HYDROCHLORIDE
  12. LAMICTAL [Concomitant]
     Active Substance: LAMOTRIGINE
  13. GABAPENTIN 400 MG [Suspect]
     Active Substance: GABAPENTIN
     Indication: HYPOAESTHESIA
     Dosage: ?          QUANTITY:1 CAPSULE(S);?
     Route: 048
     Dates: start: 20161107, end: 20161110
  14. TAMSULOSIN [Concomitant]
     Active Substance: TAMSULOSIN
  15. ZYRTEC [Concomitant]
     Active Substance: CETIRIZINE HYDROCHLORIDE

REACTIONS (2)
  - Condition aggravated [None]
  - Asthma [None]

NARRATIVE: CASE EVENT DATE: 20161107
